FAERS Safety Report 17510784 (Version 28)
Quarter: 2021Q2

REPORT INFORMATION
  Report Type: Report from Study
  Country: MX (occurrence: MX)
  Receive Date: 20200306
  Receipt Date: 20210413
  Transmission Date: 20210716
  Serious: Yes (Life-Threatening, Hospitalization)
  Sender: FDA-Public Use
  Company Number: MX-EISAI MEDICAL RESEARCH-EC-2020-071332

PATIENT
  Age: 75 Year
  Sex: Male
  Weight: 59 kg

DRUGS (10)
  1. LENVATINIB [Suspect]
     Active Substance: LENVATINIB
     Dosage: STARTING DOSE AT 12 MILLIGRAM (FLUCTUATED DOSAGE)
     Route: 048
     Dates: start: 20200527
  2. PLACEBO [Suspect]
     Active Substance: UNSPECIFIED INGREDIENT
     Route: 041
     Dates: start: 20200218, end: 20200218
  3. LENVATINIB [Suspect]
     Active Substance: LENVATINIB
     Indication: HEPATOCELLULAR CARCINOMA
     Route: 048
     Dates: start: 20190723, end: 20200227
  4. PLACEBO [Suspect]
     Active Substance: UNSPECIFIED INGREDIENT
     Indication: HEPATOCELLULAR CARCINOMA
     Route: 041
     Dates: start: 20190723, end: 20200128
  5. AMLODIPINE [Concomitant]
     Active Substance: AMLODIPINE BESYLATE
     Dates: start: 201301, end: 20201130
  6. CANDESARTAN. [Concomitant]
     Active Substance: CANDESARTAN
     Dates: start: 201301, end: 20201210
  7. LEVOTIROXINA (LEVOTHYROXINE SODIUM) [Concomitant]
     Active Substance: LEVOTHYROXINE SODIUM
     Dates: start: 20191219, end: 20200217
  8. LEVOTIROXINA (LEVOTHYROXINE SODIUM) [Concomitant]
     Active Substance: LEVOTHYROXINE SODIUM
     Dates: start: 20200218, end: 20200229
  9. PLACEBO [Suspect]
     Active Substance: UNSPECIFIED INGREDIENT
     Route: 041
     Dates: start: 20200527
  10. METOPROLOL. [Concomitant]
     Active Substance: METOPROLOL
     Dates: start: 201301, end: 20201210

REACTIONS (3)
  - Abdominal sepsis [Recovered/Resolved]
  - Intestinal obstruction [Recovered/Resolved]
  - Diarrhoea [Recovered/Resolved]

NARRATIVE: CASE EVENT DATE: 20200224
